FAERS Safety Report 10036187 (Version 2)
Quarter: 2014Q1

REPORT INFORMATION
  Report Type: Spontaneous
  Country: FR (occurrence: FR)
  Receive Date: 20140325
  Receipt Date: 20140325
  Transmission Date: 20141002
  Serious: Yes (Hospitalization)
  Sender: FDA-Public Use
  Company Number: FR-ABBVIE-13P-056-1123933-00

PATIENT
  Age: 80 Year
  Sex: Male

DRUGS (1)
  1. ENANTONE [Suspect]
     Indication: PROSTATE CANCER
     Route: 042
     Dates: start: 20130716

REACTIONS (3)
  - Incorrect route of drug administration [Not Recovered/Not Resolved]
  - Back pain [Not Recovered/Not Resolved]
  - Off label use [Not Recovered/Not Resolved]
